FAERS Safety Report 13689459 (Version 6)
Quarter: 2017Q4

REPORT INFORMATION
  Report Type: Spontaneous
  Country: HU (occurrence: HU)
  Receive Date: 20170626
  Receipt Date: 20171005
  Transmission Date: 20180320
  Serious: Yes (Other)
  Sender: FDA-Public Use
  Company Number: HU-PFIZER INC-2017191280

PATIENT
  Age: 64 Year
  Sex: Male

DRUGS (7)
  1. CONCOR [Concomitant]
     Active Substance: BISOPROLOL FUMARATE
     Dosage: UNK
  2. CO IRABEL [Concomitant]
     Dosage: UNK
  3. FRONTIN [Concomitant]
     Active Substance: ALPRAZOLAM
     Dosage: UNK
  4. SUTENT [Suspect]
     Active Substance: SUNITINIB MALATE
     Indication: CLEAR CELL RENAL CELL CARCINOMA
     Dosage: 50 MG, CYCLIC (DAILY ACCORDING TO 4/2 SCHEMA; FOR 28 DAYS ON, THEN A 14 DAY BREAK)
     Route: 048
     Dates: start: 20161128, end: 20170601
  5. CARDILOPIN [Concomitant]
     Dosage: UNK
  6. SYNCUMAR [Concomitant]
     Active Substance: ACENOCOUMAROL
     Dosage: UNK
  7. SUTENT [Suspect]
     Active Substance: SUNITINIB MALATE
     Dosage: UNK
     Dates: start: 20170608

REACTIONS (5)
  - Thrombocytopenia [Recovered/Resolved]
  - Gamma-glutamyltransferase increased [Recovered/Resolved]
  - Dysgeusia [Recovered/Resolved]
  - Diarrhoea [Recovered/Resolved]
  - Weight decreased [Recovered/Resolved]

NARRATIVE: CASE EVENT DATE: 20170323
